FAERS Safety Report 24683079 (Version 3)
Quarter: 2025Q3

REPORT INFORMATION
  Report Type: Spontaneous
  Country: US (occurrence: US)
  Receive Date: 20241201
  Receipt Date: 20250810
  Transmission Date: 20251021
  Serious: No
  Sender: ALEXION PHARMACEUTICALS
  Company Number: US-AstraZeneca-CH-00755344AP

PATIENT
  Sex: Female

DRUGS (1)
  1. BYDUREON BCISE [Suspect]
     Active Substance: EXENATIDE
     Dosage: 2 MILLIGRAM, QW

REACTIONS (7)
  - Weight decreased [Unknown]
  - Shoulder arthroplasty [Unknown]
  - Exercise lack of [Unknown]
  - Weight increased [Unknown]
  - Product dose omission issue [Unknown]
  - Device issue [Unknown]
  - Device malfunction [Unknown]
